FAERS Safety Report 26195189 (Version 1)
Quarter: 2025Q4

REPORT INFORMATION
  Report Type: Spontaneous
  Country: CN (occurrence: CN)
  Receive Date: 20251224
  Receipt Date: 20251224
  Transmission Date: 20260117
  Serious: Yes (Hospitalization)
  Sender: ADVANZ PHARMA
  Company Number: CN-SANOFI-02745712

PATIENT

DRUGS (4)
  1. HYDROXYCHLOROQUINE SULFATE [Suspect]
     Active Substance: HYDROXYCHLOROQUINE SULFATE
     Indication: Antiphospholipid syndrome
     Dosage: 1 DOSAGE FORM, BID (FILM-COATED TABLET)
     Route: 048
     Dates: start: 202503, end: 2025
  2. HYDROXYCHLOROQUINE SULFATE [Suspect]
     Active Substance: HYDROXYCHLOROQUINE SULFATE
     Dosage: 1 DOSAGE FORM, QD (FILM-COATED TABLET)
     Route: 048
     Dates: start: 2025
  3. ASPIRIN [Concomitant]
     Active Substance: ASPIRIN
     Indication: Product used for unknown indication
     Dosage: 25 MG, QD (BEFORE PREGNANCY)
     Route: 065
  4. ASPIRIN [Concomitant]
     Active Substance: ASPIRIN
     Dosage: 100 MG, QD (INCREASED AFTER THE DOSE OF PLAQUENIL WAS DECREASED)
     Route: 065

REACTIONS (4)
  - Morning sickness [Unknown]
  - Anaemia [Unknown]
  - Exposure during pregnancy [Unknown]
  - Off label use [Unknown]

NARRATIVE: CASE EVENT DATE: 20250101
